FAERS Safety Report 21297232 (Version 1)
Quarter: 2022Q3

REPORT INFORMATION
  Report Type: Spontaneous
  Country: US (occurrence: US)
  Receive Date: 20220906
  Receipt Date: 20220906
  Transmission Date: 20221026
  Serious: Yes (Hospitalization)
  Sender: FDA-Public Use
  Company Number: US-MYLANLABS-2022M1090388

PATIENT
  Age: 73 Year
  Sex: Female

DRUGS (5)
  1. AMIODARONE [Suspect]
     Active Substance: AMIODARONE
     Indication: Atrial fibrillation
     Dosage: UNK
     Route: 065
  2. METHIMAZOLE [Suspect]
     Active Substance: METHIMAZOLE
     Indication: Hyperthyroidism
     Dosage: UNK
     Route: 065
  3. PREDNISONE [Suspect]
     Active Substance: PREDNISONE
     Indication: Hyperthyroidism
     Dosage: UNK
     Route: 065
  4. METHYLPREDNISOLONE [Suspect]
     Active Substance: METHYLPREDNISOLONE
     Indication: Hyperthyroidism
     Dosage: UNK
     Route: 065
  5. METHYLPREDNISOLONE [Suspect]
     Active Substance: METHYLPREDNISOLONE
     Dosage: DOSE OF METHYLPREDNISOLONE WAS REDUCED.
     Route: 065

REACTIONS (6)
  - Hyperthyroidism [Recovered/Resolved]
  - Drug ineffective [Recovered/Resolved]
  - Neutropenia [Recovered/Resolved]
  - Candida infection [Recovered/Resolved]
  - Liver injury [Recovered/Resolved]
  - Encephalopathy [Recovered/Resolved]
